FAERS Safety Report 15649761 (Version 1)
Quarter: 2018Q4

REPORT INFORMATION
  Report Type: Spontaneous
  Country: US (occurrence: US)
  Receive Date: 20181122
  Receipt Date: 20181122
  Transmission Date: 20190205
  Serious: Yes (Death, Hospitalization, Other)
  Sender: FDA-Public Use
  Company Number: US-ROCHE-2217704

PATIENT
  Age: 67 Year
  Sex: Male

DRUGS (6)
  1. MELOXICAM. [Concomitant]
     Active Substance: MELOXICAM
  2. OCREVUS [Suspect]
     Active Substance: OCRELIZUMAB
     Route: 065
     Dates: start: 20180718
  3. SIMVASTATIN. [Concomitant]
     Active Substance: SIMVASTATIN
  4. OCREVUS [Suspect]
     Active Substance: OCRELIZUMAB
     Indication: PRIMARY PROGRESSIVE MULTIPLE SCLEROSIS
     Route: 065
     Dates: start: 20180111
  5. METHOCARBAMOL. [Concomitant]
     Active Substance: METHOCARBAMOL
  6. OCREVUS [Suspect]
     Active Substance: OCRELIZUMAB
     Route: 065
     Dates: start: 20180111

REACTIONS (4)
  - Cellulitis of male external genital organ [Unknown]
  - Abdominal abscess [Unknown]
  - Hyperkalaemia [Unknown]
  - Urinary tract infection [Fatal]

NARRATIVE: CASE EVENT DATE: 20180824
